FAERS Safety Report 9631548 (Version 3)
Quarter: 2013Q4

REPORT INFORMATION
  Report Type: Spontaneous
  Country: US (occurrence: US)
  Receive Date: 20131018
  Receipt Date: 20131216
  Transmission Date: 20140711
  Serious: No
  Sender: FDA-Public Use
  Company Number: US-PFIZER INC-2013297017

PATIENT
  Age: 58 Year
  Sex: Male
  Weight: 104 kg

DRUGS (2)
  1. XALKORI [Suspect]
     Indication: LUNG NEOPLASM MALIGNANT
     Dosage: 250 MG, UNK
     Dates: start: 201308
  2. DEXAMETHASONE [Concomitant]
     Indication: POSTOPERATIVE CARE
     Dosage: UNK

REACTIONS (2)
  - Dysgeusia [Unknown]
  - Upper respiratory tract infection [Unknown]
